FAERS Safety Report 7125595 (Version 4)
Quarter: 2014Q2

REPORT INFORMATION
  Report Type: Spontaneous
  Country: US (occurrence: US)
  Receive Date: 20090923
  Receipt Date: 20140407
  Transmission Date: 20141212
  Serious: Yes (Other)
  Sender: FDA-Public Use
  Company Number: US-ALEXION-A200900727

PATIENT
  Sex: Female

DRUGS (12)
  1. SOLIRIS [Suspect]
     Indication: PAROXYSMAL NOCTURNAL HAEMOGLOBINURIA
     Dosage: 600 MG, QW
     Route: 042
     Dates: start: 20070918, end: 20071009
  2. SOLIRIS [Suspect]
     Dosage: 900 MG, Q2W
     Route: 042
     Dates: start: 20071016, end: 2009
  3. SOLIRIS [Suspect]
     Dosage: 700 MG, ONCE
     Route: 042
     Dates: start: 2009, end: 2009
  4. SOLIRIS [Suspect]
     Dosage: 900 MG, Q2W
     Route: 042
     Dates: start: 2009
  5. FOLIC ACID [Concomitant]
     Dosage: 1 MG, QD
     Route: 048
  6. MORPHINE [Concomitant]
     Dosage: 30 MG, PRN
     Route: 048
  7. VALIUM                             /00017001/ [Concomitant]
     Dosage: 5 MG, PRN
     Route: 048
  8. AMBIEN [Concomitant]
     Dosage: 10 MG, QD
     Route: 048
  9. ZOFRAN                             /00955301/ [Concomitant]
     Dosage: 8 MG, PRN
     Route: 048
  10. PHENERGAN                          /00033001/ [Concomitant]
     Dosage: 25 MG, PRN
     Route: 048
  11. LEXAPRO [Concomitant]
     Dosage: 20 MG, QD
     Route: 048
  12. NEUPOGEN [Concomitant]
     Dosage: 300 UG, 3X WEEK

REACTIONS (7)
  - Tubo-ovarian abscess [Not Recovered/Not Resolved]
  - Splenomegaly [Unknown]
  - Varices oesophageal [Unknown]
  - Malaise [Not Recovered/Not Resolved]
  - Fatigue [Not Recovered/Not Resolved]
  - Abdominal pain [Not Recovered/Not Resolved]
  - Inappropriate schedule of drug administration [Unknown]
